FAERS Safety Report 6971904-0 (Version None)
Quarter: 2010Q3

REPORT INFORMATION
  Report Type: 
  Country: None (occurrence: None)
  Receive Date: 20100908
  Receipt Date: 20100831
  Transmission Date: 20110219
  Serious: Yes (Hospitalization, Other)
  Sender: FDA-Public Use
  Company Number: BR-ABBOTT-09P-020-0596256-00

PATIENT
  Sex: Male
  Weight: 65 kg

DRUGS (5)
  1. HUMIRA [Suspect]
     Indication: CROHN'S DISEASE
     Dosage: INDUCTION DOSE: 160MG, THEN 80MG AND A MAINTENANCE DOSE OF 40MG EVERY 15 DAYS.
     Route: 058
  2. HUMIRA [Suspect]
  3. REMICADE [Suspect]
     Indication: PRODUCT USED FOR UNKNOWN INDICATION
  4. CORTISONE ACETATE [Concomitant]
     Indication: PAIN
     Dosage: BETWEEN 10MG TO 60MG
     Route: 048
  5. FLAGYL [Concomitant]
     Indication: ANTIINFLAMMATORY THERAPY
     Route: 048

REACTIONS (6)
  - ANAPHYLACTIC SHOCK [None]
  - CARDIAC ARREST [None]
  - FISTULA [None]
  - GASTROINTESTINAL INFECTION [None]
  - INTESTINAL RESECTION [None]
  - SEVERE ACUTE RESPIRATORY SYNDROME [None]
